FAERS Safety Report 24984818 (Version 1)
Quarter: 2025Q1

REPORT INFORMATION
  Report Type: Spontaneous
  Country: MY (occurrence: MY)
  Receive Date: 20250219
  Receipt Date: 20250219
  Transmission Date: 20250409
  Serious: Yes (Other)
  Sender: CHEPLAPHARM
  Company Number: MY-CHEPLA-2025002171

PATIENT
  Age: 72 Year
  Sex: Female

DRUGS (1)
  1. OLANZAPINE [Suspect]
     Active Substance: OLANZAPINE
     Indication: Delirium
     Route: 048

REACTIONS (2)
  - Sedation complication [Recovered/Resolved]
  - Product use in unapproved indication [Unknown]
